FAERS Safety Report 14112191 (Version 3)
Quarter: 2018Q1

REPORT INFORMATION
  Report Type: Spontaneous
  Country: TR (occurrence: TR)
  Receive Date: 20171020
  Receipt Date: 20180111
  Transmission Date: 20180508
  Serious: Yes (Hospitalization, Other)
  Sender: FDA-Public Use
  Company Number: TR-ELI_LILLY_AND_COMPANY-TR201710004065

PATIENT
  Age: 76 Year
  Sex: Female

DRUGS (1)
  1. ZYPREXA [Suspect]
     Active Substance: OLANZAPINE
     Indication: INSOMNIA
     Dosage: UNK UNK, DAILY
     Route: 048

REACTIONS (10)
  - Fall [Unknown]
  - Syncope [Unknown]
  - Hepatic cirrhosis [Unknown]
  - Dysstasia [Unknown]
  - Hypersomnia [Unknown]
  - Off label use [Unknown]
  - Encephalopathy [Unknown]
  - Peripheral swelling [Unknown]
  - Pain in extremity [Unknown]
  - Loss of consciousness [Unknown]

NARRATIVE: CASE EVENT DATE: 20171008
